FAERS Safety Report 6085669-0 (Version None)
Quarter: 2009Q1

REPORT INFORMATION
  Report Type: 
  Country: None (occurrence: None)
  Receive Date: 20090220
  Receipt Date: 20090210
  Transmission Date: 20090719
  Serious: Yes (Hospitalization)
  Sender: FDA-Public Use
  Company Number: FR-ROCHE-596735

PATIENT
  Age: 75 Year
  Sex: Female

DRUGS (11)
  1. MIRCERA [Suspect]
     Dosage: FORM: INJECTABLE SOLUTION.
     Route: 065
  2. ALLOPURINOL [Interacting]
     Indication: DRUG USE FOR UNKNOWN INDICATION
     Dosage: FREQUENCY: 1 IN THE MORNING
     Route: 065
  3. CATAPRESSAN [Interacting]
     Indication: DRUG USE FOR UNKNOWN INDICATION
     Dosage: FREQUENCY: IN THE MORNING AND BEDTIME
     Route: 065
  4. TEMERIT [Interacting]
     Indication: DRUG USE FOR UNKNOWN INDICATION
     Dosage: FREQUENCY: IN THE MORNING
     Route: 065
  5. APROVEL [Interacting]
     Indication: DRUG USE FOR UNKNOWN INDICATION
     Dosage: FREQUENCY: AT LUNCH TIME
     Route: 065
  6. FUROSEMIDE [Interacting]
     Indication: DRUG USE FOR UNKNOWN INDICATION
     Dosage: FREQUENCY: IN THE MORNING
     Route: 065
  7. AMLOR [Interacting]
     Indication: DRUG USE FOR UNKNOWN INDICATION
     Dosage: FREQUENCY: IN THE MORNING AND BEDTIME
     Route: 065
  8. NOVONORM [Interacting]
     Indication: DRUG USE FOR UNKNOWN INDICATION
     Dosage: 1 DOSE
     Route: 065
  9. REMINYL [Interacting]
     Indication: DRUG USE FOR UNKNOWN INDICATION
     Dosage: REMINYL LP
     Route: 065
  10. ARANESP [Concomitant]
     Dosage: FREQUENCY: EVERY 15 DAYS
  11. LONOTEN [Concomitant]

REACTIONS (3)
  - CONFUSIONAL STATE [None]
  - DRUG INTERACTION [None]
  - PSORIASIS [None]
